FAERS Safety Report 7630517-8 (Version None)
Quarter: 2011Q3

REPORT INFORMATION
  Report Type: 
  Country: None (occurrence: None)
  Receive Date: 20110722
  Receipt Date: 20101122
  Transmission Date: 20111222
  Serious: Yes (Other)
  Sender: FDA-Public Use
  Company Number: US-BAYER-200937527NA

PATIENT
  Age: 62 Year
  Sex: Female
  Weight: 113.64 kg

DRUGS (21)
  1. AUGMENTIN '125' [Concomitant]
  2. SULAR [Concomitant]
     Indication: HYPERTENSION
  3. ASPIRIN [Concomitant]
  4. UNASYN [Concomitant]
  5. ISOSORBIDE DINITRATE [Concomitant]
     Dosage: UNK
  6. MAGNEVIST [Suspect]
     Indication: NUCLEAR MAGNETIC RESONANCE IMAGING
     Dosage: ^2ML/KG^
     Dates: start: 20041112, end: 20041112
  7. CARVEDILOL [Concomitant]
     Indication: HYPERTENSION
     Dosage: 1/2 TAB BID
  8. LASIX [Concomitant]
  9. IMDUR [Concomitant]
  10. BENADRYL [Concomitant]
  11. LISINOPRIL [Concomitant]
  12. KEFLEX [Concomitant]
  13. ISORDIL [Concomitant]
  14. ANTACIDS [Concomitant]
  15. ADVAIR DISKUS 100/50 [Concomitant]
  16. DARVOCET [Concomitant]
     Indication: PAIN
     Dosage: 1 G, TID
  17. GADOLINIUM IN UNSPECIFIED DRUG [Suspect]
     Indication: PRODUCT USED FOR UNKNOWN INDICATION
     Dosage: UNK
     Route: 042
     Dates: start: 20070101
  18. COREG [Concomitant]
  19. NORVASC [Concomitant]
  20. PERCOCET [Concomitant]
  21. COUMADIN [Concomitant]
     Dosage: UNK
     Dates: start: 20040101

REACTIONS (22)
  - SKIN DISCOLOURATION [None]
  - ARTHRITIS [None]
  - ARTHRALGIA [None]
  - BLISTER [None]
  - SKIN ULCER [None]
  - BACK PAIN [None]
  - NEPHROGENIC SYSTEMIC FIBROSIS [None]
  - ERYTHEMA [None]
  - SKIN WARM [None]
  - DRY SKIN [None]
  - SKIN BURNING SENSATION [None]
  - SKIN LESION [None]
  - JOINT CONTRACTURE [None]
  - MOBILITY DECREASED [None]
  - PRURITUS [None]
  - SKIN EXFOLIATION [None]
  - PAIN [None]
  - SKIN TIGHTNESS [None]
  - PAIN OF SKIN [None]
  - SKIN INDURATION [None]
  - OEDEMA PERIPHERAL [None]
  - BURNING SENSATION [None]
